FAERS Safety Report 24313946 (Version 1)
Quarter: 2024Q3

REPORT INFORMATION
  Report Type: Other
  Country: US (occurrence: US)
  Receive Date: 20240912
  Receipt Date: 20240912
  Transmission Date: 20241017
  Serious: Yes (Hospitalization, Disabling)
  Sender: NOSTRUM
  Company Number: US-Nostrum Laboratories, Inc.-2161525

PATIENT
  Age: 51 Year
  Sex: Female

DRUGS (1)
  1. RANITIDINE HYDROCHLORIDE [Suspect]
     Active Substance: RANITIDINE HYDROCHLORIDE
     Indication: Gastrooesophageal reflux disease
     Route: 048

REACTIONS (2)
  - Adenosquamous cell lung cancer [Unknown]
  - Skin cancer [Unknown]
